FAERS Safety Report 6526805-9 (Version None)
Quarter: 2009Q4

REPORT INFORMATION
  Report Type: 
  Country: None (occurrence: None)
  Receive Date: 20091214
  Receipt Date: 20081222
  Transmission Date: 20100525
  Serious: Yes (Other)
  Sender: FDA-Public Use
  Company Number: 604651

PATIENT
  Age: 50 Year
  Sex: Male

DRUGS (2)
  1. PEGASYS [Suspect]
     Indication: HEPATITIS C
     Dosage: 180 UG 1 PER WEEK
     Dates: start: 20081119, end: 20081203
  2. COPEGUS [Suspect]
     Indication: HEPATITIS C
     Dosage: 800 MG 1 PER DAY
     Dates: start: 20081119, end: 20081203

REACTIONS (1)
  - PLATELET COUNT DECREASED [None]
